FAERS Safety Report 9844872 (Version 2)
Quarter: 2014Q1

REPORT INFORMATION
  Report Type: Spontaneous
  Country: US (occurrence: US)
  Receive Date: 20140127
  Receipt Date: 20140127
  Transmission Date: 20141002
  Serious: Yes (Disabling)
  Sender: FDA-Public Use
  Company Number: US-EISAI INC-AP356-00394-SPO-US

PATIENT
  Age: 62 Year
  Sex: Male
  Weight: 136.36 kg

DRUGS (1)
  1. BELVIQ (LORCASERIN HYDROCHLORIDE) [Suspect]
     Indication: WEIGHT DECREASED
     Route: 048

REACTIONS (1)
  - Urinary retention [Recovered/Resolved]
